FAERS Safety Report 4276683-6 (Version None)
Quarter: 2004Q1

REPORT INFORMATION
  Report Type: 
  Country: None (occurrence: None)
  Receive Date: 20040120
  Receipt Date: 20040105
  Transmission Date: 20041129
  Serious: Yes (Other)
  Sender: FDA-Public Use
  Company Number: HQWYE173007JAN04

PATIENT
  Age: 69 Year
  Sex: Male
  Weight: 104.42 kg

DRUGS (1)
  1. PRIMATENE MIST [Suspect]
     Indication: ASTHMA
     Dosage: ONE INHALATION EVERY 30 - 60 MINUTES AS NEEDED, INHALATION
     Route: 055
     Dates: end: 20031225

REACTIONS (5)
  - BLOOD ALCOHOL INCREASED [None]
  - BREATH ALCOHOL TEST POSITIVE [None]
  - FALSE POSITIVE LABORATORY RESULT [None]
  - OVERDOSE [None]
  - RESPIRATORY TRACT IRRITATION [None]
